FAERS Safety Report 8853219 (Version 1)
Quarter: 2012Q4

REPORT INFORMATION
  Report Type: 
  Country: US (occurrence: US)
  Receive Date: 20121022
  Receipt Date: 20121022
  Transmission Date: 20130627
  Serious: Yes (Death, Other)
  Sender: FDA-Public Use
  Company Number: PHHY2012US094149

PATIENT
  Age: 85 Year
  Sex: Female

DRUGS (1)
  1. BUFFERIN REGULAR STRENGTH [Suspect]
     Route: 048

REACTIONS (4)
  - Death [Fatal]
  - Pneumonia [Not Recovered/Not Resolved]
  - Limb discomfort [Not Recovered/Not Resolved]
  - Incorrect drug administration duration [Unknown]
